FAERS Safety Report 23983668 (Version 1)
Quarter: 2024Q2

REPORT INFORMATION
  Report Type: Spontaneous
  Country: US (occurrence: US)
  Receive Date: 20240618
  Receipt Date: 20240618
  Transmission Date: 20240716
  Serious: Yes (Hospitalization)
  Sender: FDA-Public Use
  Company Number: US-NOVITIUMPHARMA-2024USNVP01037

PATIENT
  Age: 56 Year
  Sex: Female

DRUGS (3)
  1. PREDNISONE [Suspect]
     Active Substance: PREDNISONE
     Indication: Multicentric reticulohistiocytosis
     Dosage: 20-60 MG
  2. PREDNISONE [Suspect]
     Active Substance: PREDNISONE
     Dosage: DOSE REDUCED
  3. HYDROXYCHLOROQUINE [Concomitant]
     Active Substance: HYDROXYCHLOROQUINE
     Indication: Multicentric reticulohistiocytosis

REACTIONS (1)
  - Rebound effect [Unknown]
